FAERS Safety Report 4536868-8 (Version None)
Quarter: 2004Q4

REPORT INFORMATION
  Report Type: 
  Country: None (occurrence: None)
  Receive Date: 20041223
  Receipt Date: 20041112
  Transmission Date: 20050328
  Serious: Yes (Hospitalization)
  Sender: FDA-Public Use
  Company Number: FR-GLAXOSMITHKLINE-B0356819A

PATIENT
  Age: 39 Year
  Sex: Male

DRUGS (5)
  1. AUGMENTIN '125' [Suspect]
     Indication: ABSCESS
     Dosage: 3G PER DAY
     Route: 042
     Dates: start: 20040926, end: 20040930
  2. ROCEPHIN [Suspect]
     Indication: ABSCESS
     Dosage: 1G PER DAY
     Route: 042
     Dates: start: 20040930, end: 20041001
  3. TAZOCILLINE [Suspect]
     Indication: ABSCESS
     Dosage: 12G PER DAY
     Route: 042
  4. FLAGYL [Concomitant]
     Indication: ABSCESS
     Dosage: 1.5G PER DAY
     Route: 042
     Dates: start: 20040930, end: 20041001
  5. TIBERAL [Concomitant]
     Indication: ABSCESS
     Route: 042
     Dates: start: 20040926, end: 20040930

REACTIONS (3)
  - CHILLS [None]
  - INFLAMMATION [None]
  - PYREXIA [None]
